FAERS Safety Report 6023297-3 (Version None)
Quarter: 2008Q4

REPORT INFORMATION
  Report Type: 
  Country: None (occurrence: None)
  Receive Date: 20081222
  Receipt Date: 20081112
  Transmission Date: 20090506
  Serious: No
  Sender: FDA-Public Use
  Company Number: ALL1-2008-03318

PATIENT
  Age: 53 Year
  Sex: Female

DRUGS (4)
  1. VYVANSE [Suspect]
     Indication: ATTENTION DEFICIT/HYPERACTIVITY DISORDER
     Dosage: 140 MG (TAKEN AS 2 X 70MG CAPSULES), 1X/DAY:QD, ORAL
     Route: 048
     Dates: end: 20080101
  2. MORPHINE [Concomitant]
  3. VITAMIN C /00008001/ (ASCORBIC ACID) [Concomitant]
  4. THYROID THERAPY [Concomitant]

REACTIONS (2)
  - DRUG INEFFECTIVE [None]
  - OVERDOSE [None]
